FAERS Safety Report 19672964 (Version 2)
Quarter: 2021Q4

REPORT INFORMATION
  Report Type: Spontaneous
  Country: ES (occurrence: ES)
  Receive Date: 20210809
  Receipt Date: 20211007
  Transmission Date: 20220303
  Serious: Yes (Hospitalization)
  Sender: FDA-Public Use
  Company Number: NVSC2021ES174653

PATIENT
  Age: 72 Year
  Sex: Female

DRUGS (5)
  1. KYMRIAH [Suspect]
     Active Substance: TISAGENLECLEUCEL
     Indication: Diffuse large B-cell lymphoma stage IV
     Dosage: UNK
     Route: 041
     Dates: start: 20210618
  2. DEXAMETHASONE [Concomitant]
     Active Substance: DEXAMETHASONE
     Indication: Prophylaxis
     Dosage: 10 MG, EVERY 6 TO 8 HOURS
     Route: 065
  3. DEXAMETHASONE [Concomitant]
     Active Substance: DEXAMETHASONE
     Dosage: 8 MG, Q8H
     Route: 065
  4. KEPPRA [Concomitant]
     Active Substance: LEVETIRACETAM
     Indication: Prophylaxis
     Dosage: UNK
     Route: 065
  5. KEPPRA [Concomitant]
     Active Substance: LEVETIRACETAM
     Dosage: 1500 MG, Q12H
     Route: 065

REACTIONS (23)
  - Neoplasm [Unknown]
  - Hypofibrinogenaemia [Unknown]
  - Gaze palsy [Recovering/Resolving]
  - Movement disorder [Recovering/Resolving]
  - Nystagmus [Unknown]
  - Repetitive speech [Unknown]
  - Interleukin level increased [Unknown]
  - Platelet disorder [Unknown]
  - Systemic candida [Recovered/Resolved]
  - Klebsiella bacteraemia [Unknown]
  - Cytomegalovirus infection [Recovered/Resolved]
  - Cytokine release syndrome [Unknown]
  - Pyrexia [Unknown]
  - Hypotension [Unknown]
  - Immune effector cell-associated neurotoxicity syndrome [Recovering/Resolving]
  - Epilepsy [Recovering/Resolving]
  - Status epilepticus [Recovering/Resolving]
  - Encephalopathy [Unknown]
  - Partial seizures [Unknown]
  - Altered state of consciousness [Unknown]
  - Somnolence [Unknown]
  - Diffuse large B-cell lymphoma stage IV [Unknown]
  - Malignant neoplasm progression [Unknown]

NARRATIVE: CASE EVENT DATE: 20210618
